FAERS Safety Report 5247558-0 (Version None)
Quarter: 2007Q1

REPORT INFORMATION
  Report Type: 
  Country: None (occurrence: None)
  Receive Date: 20070227
  Receipt Date: 20070216
  Transmission Date: 20070707
  Serious: Yes (Hospitalization)
  Sender: FDA-Public Use
  Company Number: PHHO2007JP03378

PATIENT
  Sex: Male

DRUGS (10)
  1. EUGLUCON [Concomitant]
  2. BASEN [Concomitant]
  3. LIPOVAS [Concomitant]
     Dates: start: 20030929, end: 20050802
  4. AMLODIPINE [Concomitant]
  5. ACECOL [Concomitant]
  6. DIOVAN [Suspect]
     Indication: HYPERTENSION
     Dosage: 80 MG, QD
     Route: 048
     Dates: start: 20030929
  7. FLUITRAN [Concomitant]
  8. TICLOPIDINE HCL [Concomitant]
  9. LIPITOR [Concomitant]
  10. DORNER [Concomitant]

REACTIONS (4)
  - HEMIPLEGIA [None]
  - MUSCULAR WEAKNESS [None]
  - OPHTHALMOPLEGIA [None]
  - THROMBOTIC STROKE [None]
